FAERS Safety Report 15288571 (Version 1)
Quarter: 2018Q3

REPORT INFORMATION
  Report Type: Report from Study
  Country: AU (occurrence: AU)
  Receive Date: 20180817
  Receipt Date: 20180817
  Transmission Date: 20181010
  Serious: Yes (Hospitalization)
  Sender: FDA-Public Use
  Company Number: AU-TEVA-2018-AU-941837

PATIENT

DRUGS (3)
  1. DESVENLAFAXINE SODIUM [Suspect]
     Active Substance: DESVENLAFAXINE
     Indication: PRODUCT USED FOR UNKNOWN INDICATION
     Route: 048
  2. TEMAZEPAM. [Suspect]
     Active Substance: TEMAZEPAM
     Route: 048
  3. DULOXETINE. [Suspect]
     Active Substance: DULOXETINE
     Route: 048

REACTIONS (3)
  - Seizure [Unknown]
  - Overdose [Unknown]
  - Toxicity to various agents [Unknown]
